FAERS Safety Report 8764148 (Version 1)
Quarter: 2012Q4

REPORT INFORMATION
  Report Type: 
  Country: GB (occurrence: GB)
  Receive Date: 20120831
  Receipt Date: 20120831
  Transmission Date: 20130627
  Serious: Yes (Death)
  Sender: FDA-Public Use
  Company Number: GB-BRISTOL-MYERS SQUIBB COMPANY-16918989

PATIENT
  Sex: Female

DRUGS (1)
  1. CO-CARELDOPA [Suspect]
     Indication: PARKINSON^S DISEASE
     Dosage: 1Df= 100/25mg.

REACTIONS (1)
  - Death [Fatal]
